FAERS Safety Report 5503618-8 (Version None)
Quarter: 2007Q4

REPORT INFORMATION
  Report Type: 
  Country: None (occurrence: None)
  Receive Date: 20071030
  Receipt Date: 20071015
  Transmission Date: 20080405
  Serious: Yes (Hospitalization)
  Sender: FDA-Public Use
  Company Number: ENT 2007-0187

PATIENT
  Age: 50 Year
  Sex: Female

DRUGS (5)
  1. ENTACAPONE [Suspect]
     Indication: PARKINSON'S DISEASE
     Dosage: 600 MG, 1-1-1
     Dates: start: 20070701
  2. RUNOTIV [Concomitant]
  3. AMANTADINE HCL [Concomitant]
  4. SIFROL [Concomitant]
  5. MADOPAR [Concomitant]

REACTIONS (1)
  - COLITIS [None]
